FAERS Safety Report 23640689 (Version 3)
Quarter: 2024Q2

REPORT INFORMATION
  Report Type: Spontaneous
  Country: US (occurrence: US)
  Receive Date: 20240318
  Receipt Date: 20240512
  Transmission Date: 20240716
  Serious: Yes (Other)
  Sender: FDA-Public Use
  Company Number: US-BRISTOL-MYERS SQUIBB COMPANY-2024-039696

PATIENT
  Age: 64 Year
  Sex: Female

DRUGS (3)
  1. LENALIDOMIDE [Suspect]
     Active Substance: LENALIDOMIDE
     Indication: Follicular lymphoma
     Dosage: TAKE 1 CAPSULE (15MG TOTAL) BY MOUTH EVERY DAY FOR 21 DAYS ON, 7 DAYS OFF.
     Route: 048
  2. LENALIDOMIDE [Suspect]
     Active Substance: LENALIDOMIDE
     Dosage: TAKE 1 CAPSULE (15MG TOTAL) BY MOUTH EVERY DAY FOR 21 DAYS ON, 7 DAYS OFF.
     Route: 048
  3. POTASSIUM [Suspect]
     Active Substance: POTASSIUM
     Indication: Blood potassium decreased

REACTIONS (6)
  - Gastric infection [Unknown]
  - Diarrhoea [Recovering/Resolving]
  - Off label use [Unknown]
  - Dry skin [Not Recovered/Not Resolved]
  - Blood potassium decreased [Recovering/Resolving]
  - Abdominal discomfort [Unknown]
